FAERS Safety Report 5293244-0 (Version None)
Quarter: 2007Q2

REPORT INFORMATION
  Report Type: 
  Country: None (occurrence: None)
  Receive Date: 20070411
  Receipt Date: 20070402
  Transmission Date: 20071010
  Serious: Yes (Death, Hospitalization)
  Sender: FDA-Public Use
  Company Number: FR-AVENTIS-200710514FR

PATIENT
  Age: 80 Year
  Sex: Female

DRUGS (7)
  1. LOVENOX [Suspect]
     Route: 058
     Dates: start: 20061218, end: 20061223
  2. PLAVIX [Suspect]
     Route: 048
     Dates: start: 20061218, end: 20061218
  3. PLAVIX [Suspect]
     Route: 048
     Dates: start: 20061219, end: 20061229
  4. PREVISCAN                          /00789001/ [Suspect]
     Route: 048
     Dates: start: 19950615, end: 20061215
  5. PREVISCAN                          /00789001/ [Suspect]
     Route: 048
     Dates: start: 20061223, end: 20061225
  6. HEPARINE CHOAY [Suspect]
     Route: 042
     Dates: start: 20061224, end: 20061229
  7. TARDYFERON                         /00023503/ [Concomitant]
     Route: 048
     Dates: start: 20050401

REACTIONS (4)
  - ANAEMIA [None]
  - CARDIAC FAILURE [None]
  - MUSCLE HAEMORRHAGE [None]
  - RENAL FAILURE ACUTE [None]
